FAERS Safety Report 7508815-8 (Version None)
Quarter: 2011Q2

REPORT INFORMATION
  Report Type: 
  Country: None (occurrence: None)
  Receive Date: 20110527
  Receipt Date: 20100110
  Transmission Date: 20111010
  Serious: Yes (Death, Hospitalization, Other)
  Sender: FDA-Public Use
  Company Number: US-BAYER-201010284NA

PATIENT
  Age: 50 Year
  Sex: Male
  Weight: 95 kg

DRUGS (22)
  1. LASIX [Concomitant]
     Dosage: 40 MG, QD
     Route: 048
  2. CALCIUM CHLORIDE [Concomitant]
     Dosage: UNK
     Dates: start: 20040701
  3. NIMESULIDE [Concomitant]
     Dosage: UNK
     Dates: start: 20040701
  4. DILTIAZEM [Concomitant]
     Dosage: 240 MG, QD
     Route: 048
  5. SIMVASTATIN [Concomitant]
     Dosage: 80 MG, QD
     Route: 048
  6. INSULIN [Concomitant]
     Dosage: 50 U, QAM
     Route: 058
  7. ZANTAC [Concomitant]
     Dosage: 50 MG, UNK
     Route: 042
     Dates: start: 20040701
  8. ETODOLAC [Concomitant]
     Dosage: 400 MG, QD
     Route: 048
  9. AMIODARONE HCL [Concomitant]
     Dosage: 150 MG, UNK
     Route: 042
     Dates: start: 20040701
  10. KANAMYCIN SULFATE [Concomitant]
     Dosage: UNK
     Route: 042
     Dates: start: 20040701
  11. VISIPAQUE [Concomitant]
     Indication: CATHETERISATION CARDIAC
     Dosage: UNK
     Dates: start: 20040628
  12. LODINE [Concomitant]
     Dosage: UNK UNK, QD
     Route: 048
  13. SOLU-CORTEF [Concomitant]
     Dosage: 100 MG, UNK
     Route: 042
     Dates: start: 20040701
  14. GABAPENTIN [Concomitant]
     Dosage: 300 MG, BID
     Route: 048
  15. INSULIN [Concomitant]
     Dosage: 25 U, QPM
     Route: 058
  16. VISIPAQUE [Concomitant]
     Indication: ANGIOGRAM
  17. TRASYLOL [Suspect]
     Dosage: 200 ML, ONCE, LOADING DOSE
     Route: 042
     Dates: start: 20040701, end: 20040701
  18. ETOMIDATE [Concomitant]
     Dosage: UNK
     Route: 042
     Dates: start: 20040701
  19. PROTAMINE SULFATE [Concomitant]
     Dosage: UNK
     Route: 042
     Dates: start: 20040701
  20. BENADRYL [Concomitant]
     Dosage: 50MG/ML, UNK
     Route: 042
     Dates: start: 20040701
  21. TRASYLOL [Suspect]
     Indication: CORONARY ARTERY BYPASS
     Dosage: 200 ML, ONCE, PRIME
     Route: 042
     Dates: start: 20040701, end: 20040701
  22. HEPARIN [Concomitant]
     Dosage: UNK
     Route: 042
     Dates: start: 20040701

REACTIONS (13)
  - DEATH [None]
  - ANHEDONIA [None]
  - RENAL FAILURE [None]
  - INJURY [None]
  - CEREBROVASCULAR ACCIDENT [None]
  - MYOCARDIAL INFARCTION [None]
  - ANXIETY [None]
  - UNEVALUABLE EVENT [None]
  - FEAR [None]
  - RENAL INJURY [None]
  - PAIN [None]
  - DEPRESSION [None]
  - MENTAL DISORDER [None]
